FAERS Safety Report 10230639 (Version 1)
Quarter: 2014Q2

REPORT INFORMATION
  Report Type: Spontaneous
  Country: FR (occurrence: FR)
  Receive Date: 20140611
  Receipt Date: 20140611
  Transmission Date: 20141212
  Serious: Yes (Hospitalization, Other)
  Sender: FDA-Public Use
  Company Number: FR-PFIZER INC-2014155043

PATIENT
  Age: 75 Year
  Sex: Female
  Weight: 46 kg

DRUGS (11)
  1. LYRICA [Suspect]
     Indication: PAIN
     Dosage: 25 MG, 3X/DAY IN THE MORNING, AT NOON AND IN THE EVENING
     Route: 048
     Dates: start: 20131208, end: 20131211
  2. PREVISCAN [Concomitant]
     Dosage: UNK
     Route: 048
  3. FLECAINE [Concomitant]
     Dosage: 4 TABLETS OF 50 MG, ONCE DAILY
     Route: 048
  4. AMLOR [Concomitant]
     Dosage: 5 MG, DAILY
     Route: 048
  5. VESICARE [Concomitant]
     Dosage: 10 MG, DAILY
     Route: 048
  6. KARDEGIC [Concomitant]
     Dosage: 75 MG, DAILY
  7. ONBREZ BREEZHALER [Concomitant]
     Dosage: 1 DF, DAILY
  8. SPIRIVA [Concomitant]
     Dosage: 1 DF, DAILY
  9. AERIUS [Concomitant]
     Dosage: 5 MG, DAILY
  10. TRANSIPEG [Concomitant]
     Dosage: 1 TO 2 DF, AS NEEDED
  11. MOPRAL [Concomitant]
     Dosage: 10 MG, DAILY
     Dates: end: 20131215

REACTIONS (13)
  - Confusional state [Recovered/Resolved]
  - Dyskinesia [Recovered/Resolved]
  - Fall [Recovered/Resolved]
  - Urinary retention [Recovered/Resolved]
  - Wrist fracture [Unknown]
  - Ataxia [Recovered/Resolved]
  - Dyspraxia [Recovered/Resolved]
  - Coordination abnormal [Recovered/Resolved]
  - Gait disturbance [Unknown]
  - Tremor [Recovered/Resolved]
  - Dry mouth [Unknown]
  - Head injury [Unknown]
  - Joint injury [Unknown]
